FAERS Safety Report 9683551 (Version 2)
Quarter: 2014Q1

REPORT INFORMATION
  Report Type: Spontaneous
  Country: US (occurrence: US)
  Receive Date: 20131112
  Receipt Date: 20140205
  Transmission Date: 20141002
  Serious: Yes (Life-Threatening, Hospitalization)
  Sender: FDA-Public Use
  Company Number: US-BAYER-2013-133417

PATIENT
  Age: 30 Year
  Sex: Female
  Weight: 67.12 kg

DRUGS (8)
  1. MIRENA [Suspect]
     Dosage: 20 MCG/24HR, CONT
     Route: 015
     Dates: start: 20081230, end: 20120522
  2. MIRENA [Suspect]
  3. IBUPROFEN [Concomitant]
     Dosage: 600 MG, UNK
     Dates: start: 201111
  4. BACTRIM [Concomitant]
     Dosage: UNK
  5. HYDROCODONE [Concomitant]
     Dosage: UNK
  6. MITOMYCIN [Concomitant]
     Dosage: UNK
  7. LORTAB [Concomitant]
     Dosage: UNK
  8. HYDROCODONE/ACETAMINOPHEN [Concomitant]
     Dosage: UNK

REACTIONS (11)
  - Gastrointestinal injury [None]
  - Uterine perforation [None]
  - Abdominal pain [None]
  - Injury [None]
  - Pain [None]
  - General physical health deterioration [None]
  - Anxiety [None]
  - Anhedonia [None]
  - Emotional distress [None]
  - Infection [None]
  - Device dislocation [None]
